FAERS Safety Report 10159373 (Version 1)
Quarter: 2014Q2

REPORT INFORMATION
  Report Type: Spontaneous
  Country: US (occurrence: US)
  Receive Date: 20140508
  Receipt Date: 20140508
  Transmission Date: 20141212
  Serious: No
  Sender: FDA-Public Use
  Company Number: US-MYLANLABS-2014S1001581

PATIENT
  Sex: Male

DRUGS (1)
  1. ITRACONAZOLE CAPSULES [Suspect]
     Route: 048
     Dates: start: 20140120

REACTIONS (2)
  - Wrong technique in drug usage process [Not Recovered/Not Resolved]
  - No adverse event [Not Recovered/Not Resolved]
